FAERS Safety Report 23575932 (Version 14)
Quarter: 2024Q4

REPORT INFORMATION
  Report Type: Spontaneous
  Country: US (occurrence: US)
  Receive Date: 20240228
  Receipt Date: 20241231
  Transmission Date: 20250115
  Serious: Yes (Hospitalization)
  Sender: PFIZER
  Company Number: US-PFIZER INC-PV202400025953

PATIENT
  Age: 70 Year
  Sex: Male
  Weight: 100.45 kg

DRUGS (1)
  1. BOSULIF [Suspect]
     Active Substance: BOSUTINIB MONOHYDRATE
     Indication: Chronic myeloid leukaemia
     Dosage: 300 MG, DAILY
     Route: 048

REACTIONS (1)
  - Cardiac disorder [Unknown]
